FAERS Safety Report 19003510 (Version 1)
Quarter: 2021Q1

REPORT INFORMATION
  Report Type: Spontaneous
  Country: IE (occurrence: IE)
  Receive Date: 20210312
  Receipt Date: 20210312
  Transmission Date: 20210420
  Serious: Yes (Death, Other)
  Sender: FDA-Public Use
  Company Number: IE-TAKEDA-2021TUS015477

PATIENT
  Age: 77 Year
  Sex: Female

DRUGS (3)
  1. HUMAN NORMAL IMMUNOGLOBULIN [Suspect]
     Active Substance: HUMAN IMMUNOGLOBULIN G
     Indication: GUILLAIN-BARRE SYNDROME
  2. HUMAN NORMAL IMMUNOGLOBULIN [Suspect]
     Active Substance: HUMAN IMMUNOGLOBULIN G
     Indication: MILLER FISHER SYNDROME
  3. HUMAN NORMAL IMMUNOGLOBULIN [Suspect]
     Active Substance: HUMAN IMMUNOGLOBULIN G
     Indication: MYASTHENIA GRAVIS
     Dosage: UNK
     Route: 042

REACTIONS (2)
  - No adverse event [Unknown]
  - Drug ineffective [Fatal]
